FAERS Safety Report 16065934 (Version 1)
Quarter: 2019Q2

REPORT INFORMATION
  Report Type: Spontaneous
  Country: US (occurrence: US)
  Receive Date: 20190312
  Receipt Date: 20190312
  Transmission Date: 20190711
  Serious: Yes (Death, Life-Threatening, Hospitalization)
  Sender: FDA-Public Use
  Company Number: None

PATIENT
  Age: 80 Year
  Sex: Male
  Weight: 77.4 kg

DRUGS (1)
  1. LEVOFLOXACIN. [Suspect]
     Active Substance: LEVOFLOXACIN
     Indication: NEPHROLITHIASIS
     Dosage: ?          QUANTITY:2 TABLET(S);?
     Route: 048

REACTIONS (6)
  - Cardiac failure [None]
  - Treatment noncompliance [None]
  - Paralysis [None]
  - Hallucinations, mixed [None]
  - Depression [None]
  - Renal failure [None]

NARRATIVE: CASE EVENT DATE: 20180201
